FAERS Safety Report 5716023-6 (Version None)
Quarter: 2008Q2

REPORT INFORMATION
  Report Type: 
  Country: None (occurrence: None)
  Receive Date: 20080424
  Receipt Date: 20080414
  Transmission Date: 20081010
  Serious: Yes (Hospitalization, Other)
  Sender: FDA-Public Use
  Company Number: US-ELI_LILLY_AND_COMPANY-US200804003943

PATIENT
  Sex: Female

DRUGS (3)
  1. GEMZAR [Suspect]
     Indication: BREAST CANCER
     Dosage: 1000 MG/M2, UNK
     Dates: start: 20070722, end: 20080206
  2. ANTI-ASTHMATICS [Concomitant]
     Indication: ASTHMA
  3. ANTI-DIABETICS [Concomitant]
     Indication: DIABETES MELLITUS

REACTIONS (9)
  - ALANINE AMINOTRANSFERASE INCREASED [None]
  - ASPARTATE AMINOTRANSFERASE INCREASED [None]
  - BLOOD ALKALINE PHOSPHATASE INCREASED [None]
  - BLOOD BILIRUBIN INCREASED [None]
  - CARDIAC CIRRHOSIS [None]
  - CARDIOMYOPATHY [None]
  - HAEMOGLOBIN ABNORMAL [None]
  - OBSTRUCTION GASTRIC [None]
  - VOMITING [None]
